FAERS Safety Report 5307671-6 (Version None)
Quarter: 2007Q2

REPORT INFORMATION
  Report Type: 
  Country: None (occurrence: None)
  Receive Date: 20070425
  Receipt Date: 20070413
  Transmission Date: 20071010
  Serious: Yes (Other)
  Sender: FDA-Public Use
  Company Number: US-PFIZER INC-2007012967

PATIENT
  Sex: Female
  Weight: 71.7 kg

DRUGS (5)
  1. CHANTIX [Suspect]
     Indication: SMOKING CESSATION THERAPY
     Dates: start: 20070129, end: 20070212
  2. CHANTIX [Suspect]
  3. BENICAR [Concomitant]
     Indication: HYPERTENSION
  4. VYTORIN [Concomitant]
     Dates: end: 20070212
  5. VITAMINS [Concomitant]

REACTIONS (7)
  - COUGH [None]
  - DRY THROAT [None]
  - PARAESTHESIA ORAL [None]
  - PHARYNGOLARYNGEAL PAIN [None]
  - PYREXIA [None]
  - UPPER RESPIRATORY TRACT CONGESTION [None]
  - UPPER RESPIRATORY TRACT INFECTION [None]
